FAERS Safety Report 6740086-2 (Version None)
Quarter: 2010Q2

REPORT INFORMATION
  Report Type: 
  Country: None (occurrence: None)
  Receive Date: 20100525
  Receipt Date: 20100426
  Transmission Date: 20101027
  Serious: No
  Sender: FDA-Public Use
  Company Number: A0852251A

PATIENT
  Age: 94 Year
  Sex: Female

DRUGS (2)
  1. BACTROBAN [Suspect]
     Indication: RASH
     Dosage: 1APP ALTERNATE DAYS
     Route: 061
     Dates: start: 20100317, end: 20100319
  2. DIABETES MEDICATION [Concomitant]

REACTIONS (3)
  - APPLICATION SITE ERYTHEMA [None]
  - BURNING SENSATION [None]
  - RASH [None]
